FAERS Safety Report 26028432 (Version 2)
Quarter: 2025Q4

REPORT INFORMATION
  Report Type: Spontaneous
  Country: EG (occurrence: EG)
  Receive Date: 20251111
  Receipt Date: 20251221
  Transmission Date: 20260117
  Serious: Yes (Other)
  Sender: NOVO NORDISK
  Company Number: EG-NOVOPROD-1556996

PATIENT
  Age: 786 Month
  Sex: Female
  Weight: 90 kg

DRUGS (1)
  1. INSULIN HUMAN [Suspect]
     Active Substance: INSULIN HUMAN
     Indication: Diabetes mellitus
     Dosage: 50 IU, QD (30 U IN THE MORNING AND 20 U AT NIGHT)
     Route: 058

REACTIONS (7)
  - Dizziness [Unknown]
  - Carotid artery compression [Unknown]
  - Fall [Unknown]
  - Hand fracture [Unknown]
  - Head injury [Unknown]
  - Hyperglycaemia [Not Recovered/Not Resolved]
  - Product dose omission issue [Unknown]
